FAERS Safety Report 5830522-8 (Version None)
Quarter: 2008Q3

REPORT INFORMATION
  Report Type: 
  Country: None (occurrence: None)
  Receive Date: 20080801
  Receipt Date: 20070816
  Transmission Date: 20090109
  Serious: Yes (Hospitalization)
  Sender: FDA-Public Use
  Company Number: US-BRISTOL-MYERS SQUIBB COMPANY-13824644

PATIENT
  Age: 80 Year
  Sex: Male

DRUGS (9)
  1. COUMADIN [Suspect]
     Indication: ATRIAL FIBRILLATION
     Route: 048
     Dates: start: 20000701
  2. DIAZEPAM [Concomitant]
  3. PROTONIX [Concomitant]
  4. REGLAN [Concomitant]
     Dosage: TAKE AC AND HS (BEFORE MEALS AND AT HOUR OF SLEEP).
  5. ISOSORBIDE MONONITRATE [Concomitant]
  6. ALLOPURINOL [Concomitant]
  7. METOPROLOL TARTRATE [Concomitant]
  8. DURAGESIC-100 [Concomitant]
  9. NITROGLYCERIN [Concomitant]

REACTIONS (1)
  - CEREBROVASCULAR ACCIDENT [None]
